FAERS Safety Report 8540021-0 (Version None)
Quarter: 2012Q3

REPORT INFORMATION
  Report Type: 
  Country: None (occurrence: None)
  Receive Date: 20120726
  Receipt Date: 20120718
  Transmission Date: 20120928
  Serious: Yes (Other)
  Sender: FDA-Public Use
  Company Number: US-ASTRAZENECA-2012SE50268

PATIENT
  Age: 75 Year
  Sex: Female
  Weight: 45.4 kg

DRUGS (4)
  1. MULTI-VITAMIN [Concomitant]
     Indication: HAIR DISORDER
  2. SYMBICORT [Suspect]
     Indication: ASTHMA
     Dosage: 160/4.5 MCG, TWO PUFFS, TWO TIMES A DAY
     Route: 055
     Dates: start: 20090101
  3. FUROSEMIDE [Concomitant]
  4. CALCIUM [Concomitant]
     Indication: OSTEOPOROSIS

REACTIONS (5)
  - DRY MOUTH [None]
  - CANDIDIASIS [None]
  - CATARACT [None]
  - MALIGNANT MELANOMA [None]
  - ALOPECIA [None]
